FAERS Safety Report 6274051-9 (Version None)
Quarter: 2009Q3

REPORT INFORMATION
  Report Type: 
  Country: None (occurrence: None)
  Receive Date: 20090720
  Receipt Date: 20090708
  Transmission Date: 20100115
  Serious: Yes (Hospitalization)
  Sender: FDA-Public Use
  Company Number: CH-ELI_LILLY_AND_COMPANY-CH200907001640

PATIENT
  Age: 21 Year
  Sex: Male
  Weight: 97.5 kg

DRUGS (2)
  1. ZYPREXA [Suspect]
     Indication: PSYCHOTIC DISORDER
     Dosage: 20 MG, DAILY (1/D)
     Route: 048
     Dates: start: 19980101, end: 20090101
  2. ZYPREXA [Suspect]
     Dosage: 30 MG, DAILY (1/D)
     Route: 048
     Dates: start: 20090101, end: 20090501

REACTIONS (4)
  - OVERDOSE [None]
  - OVERWEIGHT [None]
  - PSYCHOTIC DISORDER [None]
  - WEIGHT INCREASED [None]
